FAERS Safety Report 9564275 (Version 1)
Quarter: 2013Q3

REPORT INFORMATION
  Report Type: Spontaneous
  Country: US (occurrence: US)
  Receive Date: 20130930
  Receipt Date: 20130930
  Transmission Date: 20140515
  Serious: No
  Sender: FDA-Public Use
  Company Number: US-BIOGENIDEC-2013BI088676

PATIENT
  Age: 40 Year
  Sex: Female

DRUGS (2)
  1. AVONEX [Suspect]
     Indication: MULTIPLE SCLEROSIS
     Route: 030
     Dates: start: 20080602
  2. AVONEX [Suspect]
     Indication: MULTIPLE SCLEROSIS
     Route: 030

REACTIONS (6)
  - Adverse drug reaction [Not Recovered/Not Resolved]
  - Mobility decreased [Unknown]
  - Abasia [Unknown]
  - Contusion [Unknown]
  - Influenza like illness [Recovered/Resolved]
  - Myalgia [Not Recovered/Not Resolved]
